FAERS Safety Report 17732684 (Version 3)
Quarter: 2021Q2

REPORT INFORMATION
  Report Type: Spontaneous
  Country: JP (occurrence: JP)
  Receive Date: 20200501
  Receipt Date: 20210401
  Transmission Date: 20210716
  Serious: Yes (Other)
  Sender: FDA-Public Use
  Company Number: JP-GLAXOSMITHKLINE-JP2020072216

PATIENT
  Age: 72 Year
  Sex: Male

DRUGS (1)
  1. AVOLVE [Suspect]
     Active Substance: DUTASTERIDE
     Indication: BENIGN PROSTATIC HYPERPLASIA
     Dosage: UNK, QD
     Route: 048
     Dates: start: 20191115, end: 20200430

REACTIONS (16)
  - Weight increased [Not Recovered/Not Resolved]
  - Nipple enlargement [Unknown]
  - Benign prostatic hyperplasia [Unknown]
  - Pollakiuria [Unknown]
  - Cardiac disorder [Unknown]
  - Breast enlargement [Unknown]
  - Dyspnoea [Unknown]
  - Therapy cessation [Unknown]
  - Urinary retention [Unknown]
  - Palpitations [Recovered/Resolved]
  - Muscular weakness [Unknown]
  - Exercise tolerance decreased [Unknown]
  - Angina pectoris [Not Recovered/Not Resolved]
  - Rhabdomyolysis [Unknown]
  - Cardiac dysfunction [Unknown]
  - Limb discomfort [Recovered/Resolved]
